FAERS Safety Report 9182840 (Version 1)
Quarter: 2013Q1

REPORT INFORMATION
  Report Type: Spontaneous
  Country: US (occurrence: US)
  Receive Date: 20130322
  Receipt Date: 20130322
  Transmission Date: 20140127
  Serious: No
  Sender: FDA-Public Use
  Company Number: US-BRISTOL-MYERS SQUIBB COMPANY-16406134

PATIENT
  Age: 56 Year
  Sex: Male
  Weight: 71.2 kg

DRUGS (1)
  1. ERBITUX [Suspect]
     Indication: HEAD AND NECK CANCER
     Dosage: LAST THERAPY 13-FEB-2012
     Dates: start: 20111227

REACTIONS (5)
  - Dysphonia [Unknown]
  - Dry mouth [Unknown]
  - Rash [Recovering/Resolving]
  - Weight decreased [Unknown]
  - Dysphagia [Unknown]
